FAERS Safety Report 5512817-0 (Version None)
Quarter: 2007Q4

REPORT INFORMATION
  Report Type: 
  Country: None (occurrence: None)
  Receive Date: 20071112
  Receipt Date: 20071101
  Transmission Date: 20080405
  Serious: Yes (Hospitalization)
  Sender: FDA-Public Use
  Company Number: US-JNJFOC-20071101106

PATIENT
  Age: 51 Year
  Sex: Female
  Weight: 68.04 kg

DRUGS (11)
  1. REMICADE [Suspect]
     Indication: CROHN'S DISEASE
     Dosage: SECOND INFUSION
     Route: 042
  2. REMICADE [Suspect]
     Indication: COLITIS ULCERATIVE
     Route: 042
  3. ASACOL [Concomitant]
  4. PREDNISONE [Concomitant]
  5. POTASSIUM CHLORIDE [Concomitant]
  6. LASIX [Concomitant]
  7. ZEGERID [Concomitant]
  8. PULMICORT [Concomitant]
  9. CLONIDINE [Concomitant]
  10. ALINIA [Concomitant]
  11. IRON [Concomitant]

REACTIONS (3)
  - ABDOMINAL DISTENSION [None]
  - ARTHRALGIA [None]
  - INFUSION RELATED REACTION [None]
